FAERS Safety Report 14904063 (Version 3)
Quarter: 2018Q2

REPORT INFORMATION
  Report Type: Report from Study
  Country: TR (occurrence: TR)
  Receive Date: 20180516
  Receipt Date: 20180530
  Transmission Date: 20180711
  Serious: Yes (Other)
  Sender: FDA-Public Use
  Company Number: TR-GILEAD-2018-0338800

PATIENT
  Age: 62 Year
  Sex: Male

DRUGS (6)
  1. LEDIPASVIR/SOFOSBUVIR [Suspect]
     Active Substance: LEDIPASVIR\SOFOSBUVIR
     Indication: HEPATITIS C VIRUS TEST POSITIVE
     Route: 065
  2. PHENYTOIN. [Concomitant]
     Active Substance: PHENYTOIN
  3. TOPIRAMATE. [Concomitant]
     Active Substance: TOPIRAMATE
  4. LEVETIRACETAM. [Concomitant]
     Active Substance: LEVETIRACETAM
  5. AZATHIOPRINE. [Concomitant]
     Active Substance: AZATHIOPRINE
  6. CYCLOSPORIN [Concomitant]
     Active Substance: CYCLOSPORINE

REACTIONS (1)
  - Epilepsy [Unknown]
